FAERS Safety Report 5195733-6 (Version None)
Quarter: 2007Q1

REPORT INFORMATION
  Report Type: 
  Country: None (occurrence: None)
  Receive Date: 20070102
  Receipt Date: 20061222
  Transmission Date: 20070707
  Serious: Yes (Other)
  Sender: FDA-Public Use
  Company Number: FR-ROCHE-472987

PATIENT
  Age: 40 Year
  Sex: Female

DRUGS (1)
  1. LARIAM [Suspect]
     Indication: MALARIA PROPHYLAXIS
     Route: 065
     Dates: start: 20000615

REACTIONS (4)
  - DYSTONIA [None]
  - LARYNGEAL DISORDER [None]
  - SPEECH DISORDER [None]
  - TORTICOLLIS [None]
